FAERS Safety Report 8292551-7 (Version None)
Quarter: 2012Q2

REPORT INFORMATION
  Report Type: 
  Country: None (occurrence: None)
  Receive Date: 20120417
  Receipt Date: 20111214
  Transmission Date: 20120825
  Serious: No
  Sender: FDA-Public Use
  Company Number: US-ASTRAZENECA-2011SE75699

PATIENT
  Sex: Female

DRUGS (4)
  1. NEXIUM [Suspect]
     Indication: ABDOMINAL DISTENSION
     Route: 048
  2. NEXIUM [Suspect]
     Indication: THROAT IRRITATION
     Route: 048
  3. NEXIUM [Suspect]
     Indication: FLATULENCE
     Route: 048
  4. NEXIUM [Suspect]
     Indication: ERUCTATION
     Route: 048

REACTIONS (2)
  - OSTEOPOROSIS [None]
  - OFF LABEL USE [None]
